FAERS Safety Report 4854777-1 (Version None)
Quarter: 2005Q4

REPORT INFORMATION
  Report Type: 
  Country: None (occurrence: None)
  Receive Date: 20051214
  Receipt Date: 20051214
  Transmission Date: 20060501
  Serious: Yes (Life-Threatening, Hospitalization, Disabling, Other)
  Sender: FDA-Public Use
  Company Number: None

PATIENT
  Sex: Female
  Weight: 77.1115 kg

DRUGS (2)
  1. AMERGE [Suspect]
     Indication: MIGRAINE
     Dosage: 1 TAB AT ONSET ; UP TO 2 IN 24 HRS PO
     Route: 048
     Dates: start: 19980101, end: 20050711
  2. AMERGE [Suspect]
     Indication: MIGRAINE
     Dosage: 1 TAB AT ONSET ; UP TO 2 IN 24 HRS PO
     Route: 048
     Dates: start: 20050711, end: 20050711

REACTIONS (3)
  - BRAIN DAMAGE [None]
  - CARDIAC ARREST [None]
  - MYOCARDIAL INFARCTION [None]
